FAERS Safety Report 19543495 (Version 1)
Quarter: 2021Q3

REPORT INFORMATION
  Report Type: Other
  Country: US (occurrence: US)
  Receive Date: 20210713
  Receipt Date: 20210713
  Transmission Date: 20211014
  Serious: Yes (Other)
  Sender: FDA-Public Use
  Company Number: US-NOVA LABORATORIES LIMITED-2113761

PATIENT
  Age: 17 Year
  Sex: Male

DRUGS (7)
  1. ASPARAGINASE [Concomitant]
     Active Substance: ASPARAGINASE
  2. CYCLOPHOSPHAMIDE. [Concomitant]
     Active Substance: CYCLOPHOSPHAMIDE
  3. DOXORUBICIN [Concomitant]
     Active Substance: DOXORUBICIN
  4. PURIXAN [Suspect]
     Active Substance: MERCAPTOPURINE
     Indication: B PRECURSOR TYPE ACUTE LEUKAEMIA
  5. VINCRISTINE [Suspect]
     Active Substance: VINCRISTINE
  6. METHOTREXATE. [Suspect]
     Active Substance: METHOTREXATE
  7. CYTARABINE. [Concomitant]
     Active Substance: CYTARABINE

REACTIONS (1)
  - Secondary hypothyroidism [Unknown]
